FAERS Safety Report 4586100-4 (Version None)
Quarter: 2005Q1

REPORT INFORMATION
  Report Type: 
  Country: None (occurrence: None)
  Receive Date: 20050125
  Receipt Date: 20041015
  Transmission Date: 20050727
  Serious: No
  Sender: FDA-Public Use
  Company Number: USA041081377

PATIENT
  Age: 71 Year
  Sex: Female
  Weight: 68 kg

DRUGS (7)
  1. FORTEO [Suspect]
     Indication: OSTEOPOROSIS
     Dosage: 20 UG/1 DAY
     Dates: start: 20041005, end: 20041015
  2. CALCIUM GLUCONATE [Concomitant]
  3. MOBIC [Concomitant]
  4. PRAVACHOL [Concomitant]
  5. NORVASC [Concomitant]
  6. TRIAMTERENE [Concomitant]
  7. ACIPHEX [Concomitant]

REACTIONS (3)
  - DECREASED APPETITE [None]
  - NAUSEA [None]
  - TREMOR [None]
